FAERS Safety Report 5814125-7 (Version None)
Quarter: 2008Q3

REPORT INFORMATION
  Report Type: 
  Country: None (occurrence: None)
  Receive Date: 20080717
  Receipt Date: 20080707
  Transmission Date: 20090109
  Serious: Yes (Other)
  Sender: FDA-Public Use
  Company Number: BR-PFIZER INC-2008055573

PATIENT
  Sex: Female
  Weight: 77.7 kg

DRUGS (3)
  1. CELEBRA [Suspect]
     Indication: OSTEOARTHRITIS
     Route: 048
  2. DICLOFENAC [Suspect]
     Indication: PAIN
  3. DICLOFENAC [Suspect]
     Indication: OSTEOARTHRITIS

REACTIONS (9)
  - BLOOD CHOLESTEROL INCREASED [None]
  - COUGH [None]
  - DRUG HYPERSENSITIVITY [None]
  - DYSPNOEA [None]
  - HYPERTENSION [None]
  - LARYNGEAL OEDEMA [None]
  - OSTEOARTHRITIS [None]
  - PAIN [None]
  - TACHYCARDIA [None]
